FAERS Safety Report 7189923-0 (Version None)
Quarter: 2010Q4

REPORT INFORMATION
  Report Type: 
  Country: None (occurrence: None)
  Receive Date: 20101123
  Receipt Date: 20100813
  Transmission Date: 20110411
  Serious: No
  Sender: FDA-Public Use
  Company Number: 017206

PATIENT
  Sex: Female

DRUGS (12)
  1. CIMZIA [Suspect]
     Indication: RHEUMATOID ARTHRITIS
     Dosage: 400 MG 1X/2 WEEKS SUBCUTANEOUS
     Route: 058
     Dates: start: 20100729
  2. METHOTREXATE [Concomitant]
  3. PREDNISONE [Concomitant]
  4. REGLAN [Concomitant]
  5. NEXIUM [Concomitant]
  6. MOBIC [Concomitant]
  7. ZYRTEC [Concomitant]
  8. FLONASE [Concomitant]
  9. PREMARIN [Concomitant]
  10. NEURONTIN [Concomitant]
  11. MIRAPEX [Concomitant]
  12. IMITREX [Concomitant]

REACTIONS (1)
  - MIGRAINE [None]
